FAERS Safety Report 7711642-X (Version None)
Quarter: 2011Q3

REPORT INFORMATION
  Report Type: 
  Country: None (occurrence: None)
  Receive Date: 20110826
  Receipt Date: 20110622
  Transmission Date: 20111222
  Serious: No
  Sender: FDA-Public Use
  Company Number: US-BRISTOL-MYERS SQUIBB COMPANY-15850365

PATIENT
  Age: 82 Year
  Sex: Female
  Weight: 70 kg

DRUGS (1)
  1. ONGLYZA [Suspect]
     Dosage: 1/2PILL OF 5MG 2-3 DAYS,RESTARTED ON 18JUN11,NO OF DOSES:3
     Route: 048
     Dates: start: 20110505

REACTIONS (1)
  - OEDEMA PERIPHERAL [None]
